FAERS Safety Report 4802849-X (Version None)
Quarter: 2005Q4

REPORT INFORMATION
  Report Type: 
  Country: None (occurrence: None)
  Receive Date: 20051013
  Receipt Date: 20050928
  Transmission Date: 20060501
  Serious: Yes (Death, Other)
  Sender: FDA-Public Use
  Company Number: GBR-2005-0001901

PATIENT
  Age: 28 Year
  Sex: Female

DRUGS (3)
  1. MORPHINE SULFATE [Suspect]
  2. AMITRIPTYLINE HYDROCHLORIDE [Suspect]
     Indication: DEPRESSION
     Dosage: ORAL
     Route: 048
  3. DIAZEPAM [Suspect]

REACTIONS (3)
  - DRUG INTERACTION [None]
  - INTENTIONAL DRUG MISUSE [None]
  - OVERDOSE [None]
